FAERS Safety Report 7367317-2 (Version None)
Quarter: 2011Q1

REPORT INFORMATION
  Report Type: 
  Country: None (occurrence: None)
  Receive Date: 20110311
  Receipt Date: 20110302
  Transmission Date: 20110831
  Serious: Yes (Death, Life-Threatening)
  Sender: FDA-Public Use
  Company Number: VISP-NO-1103S-0086

PATIENT
  Age: 71 Year
  Sex: Male
  Weight: 85 kg

DRUGS (1)
  1. VISIPAQUE [Suspect]
     Indication: METASTASIS
     Dosage: 100 ML, SINGLE DOSE, I.V.
     Route: 042
     Dates: start: 20110301, end: 20110301

REACTIONS (4)
  - CARDIAC FAILURE [None]
  - PLEURAL EFFUSION [None]
  - CARDIO-RESPIRATORY ARREST [None]
  - FLUID OVERLOAD [None]
